FAERS Safety Report 15266412 (Version 3)
Quarter: 2018Q4

REPORT INFORMATION
  Report Type: Report from Study
  Country: CN (occurrence: CN)
  Receive Date: 20180810
  Receipt Date: 20181001
  Transmission Date: 20190204
  Serious: Yes (Hospitalization, Other)
  Sender: FDA-Public Use
  Company Number: CN-GLAXOSMITHKLINE-CN2018GSK139939

PATIENT
  Age: 20 Year
  Sex: Female
  Weight: 79.9 kg

DRUGS (6)
  1. BELIMUMAB [Suspect]
     Active Substance: BELIMUMAB
     Indication: SYSTEMIC LUPUS ERYTHEMATOSUS
     Dosage: UNK
     Dates: start: 20130128, end: 20140102
  2. BELIMUMAB [Suspect]
     Active Substance: BELIMUMAB
     Indication: SYSTEMIC LUPUS ERYTHEMATOSUS
     Dosage: UNK
     Dates: start: 20140126
  3. FAMOTIDINE TABLETS [Concomitant]
     Active Substance: FAMOTIDINE
     Indication: PROPHYLAXIS
     Dosage: 20 MG, QD
     Route: 048
     Dates: start: 201206
  4. CALCITRIOL SOFT CAPSULES [Concomitant]
     Indication: MINERAL SUPPLEMENTATION
     Dosage: 0.25 G, QD
     Route: 048
     Dates: start: 20130619
  5. CALCIUM CARBONATE AND VITAMIN D3 TABLETS [Concomitant]
     Indication: MINERAL SUPPLEMENTATION
     Dosage: 0.6 G, QD
     Dates: start: 20140126
  6. OMEPRAZOLE ENTERIC COATED CAPSULES [Concomitant]
     Indication: PROPHYLAXIS
     Dosage: 20 MG, QD
     Route: 048
     Dates: start: 20140211, end: 20140324

REACTIONS (1)
  - Systemic lupus erythematosus [Recovered/Resolved]

NARRATIVE: CASE EVENT DATE: 20140207
